FAERS Safety Report 18663612 (Version 1)
Quarter: 2020Q4

REPORT INFORMATION
  Report Type: Spontaneous
  Country: US (occurrence: US)
  Receive Date: 20201225
  Receipt Date: 20201225
  Transmission Date: 20210114
  Serious: No
  Sender: FDA-Public Use
  Company Number: US-NEUROCRINE BIOSCIENCES INC.-2020NBI04629

PATIENT
  Sex: Female

DRUGS (2)
  1. INGREZZA [Suspect]
     Active Substance: VALBENAZINE
     Route: 048
     Dates: start: 202012
  2. INGREZZA [Suspect]
     Active Substance: VALBENAZINE
     Indication: TREMOR
     Route: 048
     Dates: start: 20201201, end: 202012

REACTIONS (5)
  - Drug ineffective [Unknown]
  - Feeling of body temperature change [Unknown]
  - Fatigue [Unknown]
  - Tardive dyskinesia [Unknown]
  - Nervousness [Unknown]

NARRATIVE: CASE EVENT DATE: 202012
